FAERS Safety Report 23152305 (Version 3)
Quarter: 2023Q4

REPORT INFORMATION
  Report Type: Spontaneous
  Country: US (occurrence: US)
  Receive Date: 20231107
  Receipt Date: 20231221
  Transmission Date: 20240110
  Serious: No
  Sender: FDA-Public Use
  Company Number: US-BRISTOL-MYERS SQUIBB COMPANY-2023-158822

PATIENT
  Age: 66 Year
  Sex: Female

DRUGS (2)
  1. REVLIMID [Suspect]
     Active Substance: LENALIDOMIDE
     Indication: Plasma cell myeloma
     Route: 048
  2. AUGMENTIN [Suspect]
     Active Substance: AMOXICILLIN\CLAVULANATE POTASSIUM
     Indication: Product used for unknown indication

REACTIONS (6)
  - Constipation [Not Recovered/Not Resolved]
  - Off label use [Unknown]
  - Gastrointestinal motility disorder [Not Recovered/Not Resolved]
  - Diarrhoea [Unknown]
  - Hypotension [Unknown]
  - Ageusia [Unknown]
